FAERS Safety Report 8082177-2 (Version None)
Quarter: 2012Q1

REPORT INFORMATION
  Report Type: 
  Country: None (occurrence: None)
  Receive Date: 20120127
  Receipt Date: 20110131
  Transmission Date: 20120608
  Serious: No
  Sender: FDA-Public Use
  Company Number: US-ABBOTT-11P-163-0701901-00

PATIENT
  Sex: Female
  Weight: 70.824 kg

DRUGS (4)
  1. IBUPROFEN [Concomitant]
     Indication: PRODUCT USED FOR UNKNOWN INDICATION
  2. HUMIRA [Suspect]
     Indication: RHEUMATOID ARTHRITIS
     Route: 058
     Dates: start: 20100401, end: 20110121
  3. MORPHINE SULFATE [Concomitant]
     Indication: PAIN
  4. OXYCODONE HCL [Concomitant]
     Indication: PAIN
     Dosage: 1 TABLET = 5/3.25MG
     Route: 048

REACTIONS (2)
  - ARTHRALGIA [None]
  - BONE DISORDER [None]
